FAERS Safety Report 8177825-2 (Version None)
Quarter: 2012Q1

REPORT INFORMATION
  Report Type: 
  Country: None (occurrence: None)
  Receive Date: 20120301
  Receipt Date: 20120228
  Transmission Date: 20120608
  Serious: Yes (Other)
  Sender: FDA-Public Use
  Company Number: US-MERCK-1110USA00455

PATIENT
  Age: 86 Year
  Sex: Female

DRUGS (2)
  1. FOSAMAX [Suspect]
     Indication: OSTEOPOROSIS
     Route: 048
     Dates: start: 20000101, end: 20100901
  2. OS-CAL + D [Concomitant]
     Indication: OSTEOPOROSIS
     Route: 065

REACTIONS (9)
  - ARTHRITIS [None]
  - HYPERLIPIDAEMIA [None]
  - SQUAMOUS CELL CARCINOMA OF SKIN [None]
  - TOOTH DISORDER [None]
  - WEIGHT DECREASED [None]
  - FISTULA [None]
  - HYPERTENSION [None]
  - OSTEONECROSIS OF JAW [None]
  - OSTEOMYELITIS [None]
